FAERS Safety Report 8187234 (Version 5)
Quarter: 2012Q4

REPORT INFORMATION
  Report Type: 
  Country: US (occurrence: US)
  Receive Date: 20111018
  Receipt Date: 20120917
  Transmission Date: 20130627
  Serious: Yes (Other)
  Sender: FDA-Public Use
  Company Number: US-ASTRAZENECA-2011SE01641

PATIENT
  Age: 81 Year
  Sex: Male

DRUGS (4)
  1. SYMBICORT PMDI [Suspect]
     Dosage: 80/4.5 MCG TWO PUFFS TWO TIMES A DAY
     Route: 055
  2. NEXIUM [Suspect]
     Route: 048
  3. TOPROL XL [Suspect]
     Route: 048
  4. CRESTOR [Suspect]
     Route: 048

REACTIONS (13)
  - Myocardial infarction [Unknown]
  - Haemoptysis [Unknown]
  - Prostate cancer [Unknown]
  - Dyspnoea [Unknown]
  - Asthma [Unknown]
  - Chronic obstructive pulmonary disease [Unknown]
  - Nasopharyngitis [Unknown]
  - Dry mouth [Unknown]
  - Hypertension [Unknown]
  - Abdominal discomfort [Unknown]
  - Disturbance in attention [Unknown]
  - Malaise [Unknown]
  - Drug dose omission [Unknown]
